FAERS Safety Report 4502847-X (Version None)
Quarter: 2004Q4

REPORT INFORMATION
  Report Type: 
  Country: None (occurrence: None)
  Receive Date: 20041116
  Receipt Date: 20041116
  Transmission Date: 20050328
  Serious: Yes (Disabling, Other)
  Sender: FDA-Public Use
  Company Number: None

PATIENT
  Age: 40 Year
  Sex: Male
  Weight: 113.3993 kg

DRUGS (3)
  1. VIOXX [Suspect]
     Indication: ARTHRALGIA
     Dosage: 2 PILLS ORAL
     Route: 048
     Dates: start: 20040810, end: 20040901
  2. VIOXX [Suspect]
     Indication: JOINT SWELLING
     Dosage: 2 PILLS ORAL
     Route: 048
     Dates: start: 20040810, end: 20040901
  3. BEXTRA [Suspect]
     Dosage: 2 PILLS ORAL
     Route: 048
     Dates: start: 20040902, end: 20041001

REACTIONS (9)
  - ACTIVITIES OF DAILY LIVING IMPAIRED [None]
  - ARTHRALGIA [None]
  - ARTHRITIS [None]
  - ASTHENIA [None]
  - DIFFICULTY IN WALKING [None]
  - FEELING ABNORMAL [None]
  - IMPAIRED WORK ABILITY [None]
  - MYALGIA [None]
  - PAIN [None]
